FAERS Safety Report 5091386-6 (Version None)
Quarter: 2006Q3

REPORT INFORMATION
  Report Type: 
  Country: None (occurrence: None)
  Receive Date: 20060727
  Receipt Date: 20060412
  Transmission Date: 20061208
  Serious: Yes (Other)
  Sender: FDA-Public Use
  Company Number: 2006051747

PATIENT
  Sex: Male

DRUGS (1)
  1. LYRICA [Suspect]
     Indication: LIMB DISCOMFORT
     Dosage: 300 MG (100 MG,3 IN 1 D)

REACTIONS (1)
  - HYPERSOMNIA [None]
